FAERS Safety Report 7788324-1 (Version None)
Quarter: 2011Q3

REPORT INFORMATION
  Report Type: 
  Country: None (occurrence: None)
  Receive Date: 20110930
  Receipt Date: 20110926
  Transmission Date: 20111222
  Serious: Yes (Life-Threatening, Hospitalization)
  Sender: FDA-Public Use
  Company Number: DK-ASTELLAS-2011EU006550

PATIENT
  Sex: Female

DRUGS (7)
  1. METFORMIN HCL [Suspect]
     Indication: DIABETES MELLITUS
     Dosage: 500 MG, BID
     Route: 048
     Dates: start: 20110621, end: 20110921
  2. KETESSE [Suspect]
     Indication: PAIN
     Dosage: 25 MG, UID/QD
     Route: 048
     Dates: start: 20110621, end: 20110922
  3. LANSOPRAZOL [Concomitant]
     Indication: ABDOMINAL PAIN
     Dosage: UNK
     Route: 065
     Dates: start: 20110621, end: 20110921
  4. VESICARE [Suspect]
     Indication: URINARY INCONTINENCE
     Dosage: 10 MG, UID/QD
     Route: 048
     Dates: start: 20110621
  5. GLUCOSAMIN PHARMA NORD [Suspect]
     Indication: ARTHRITIS
     Dosage: 400 MG, TID
     Route: 048
     Dates: start: 20110621
  6. CORODIL COMP [Suspect]
     Indication: HYPERTENSION
     Dosage: 32.5 MG, UID/QD
     Route: 048
     Dates: start: 20110621, end: 20110922
  7. CALCIUM CARBONATE [Concomitant]
     Indication: BLOOD CALCIUM DECREASED
     Dosage: UNK
     Route: 065
     Dates: start: 20110621, end: 20110921

REACTIONS (3)
  - LACTIC ACIDOSIS [None]
  - RENAL FAILURE ACUTE [None]
  - ABDOMINAL PAIN [None]
